FAERS Safety Report 7668258-3 (Version None)
Quarter: 2011Q3

REPORT INFORMATION
  Report Type: 
  Country: None (occurrence: None)
  Receive Date: 20110808
  Receipt Date: 20110725
  Transmission Date: 20111222
  Serious: Yes (Disabling)
  Sender: FDA-Public Use
  Company Number: FR-MYLANLABS-2011S1015353

PATIENT
  Sex: Female

DRUGS (1)
  1. CLARITHROMYCIN [Suspect]
     Indication: PRODUCT USED FOR UNKNOWN INDICATION
     Dates: start: 20110530

REACTIONS (5)
  - DYSPHONIA [None]
  - DEAFNESS [None]
  - TONGUE ERUPTION [None]
  - ANOSMIA [None]
  - AGEUSIA [None]
